FAERS Safety Report 5508256-9 (Version None)
Quarter: 2007Q4

REPORT INFORMATION
  Report Type: 
  Country: None (occurrence: None)
  Receive Date: 20071106
  Receipt Date: 20071025
  Transmission Date: 20080405
  Serious: Yes (Other)
  Sender: FDA-Public Use
  Company Number: US-GENENTECH-250425

PATIENT
  Sex: Female

DRUGS (2)
  1. AVASTIN [Suspect]
     Indication: COLORECTAL CANCER METASTATIC
     Dosage: UNK, UNK
     Dates: start: 20070501
  2. XELODA [Concomitant]
     Indication: COLORECTAL CANCER METASTATIC

REACTIONS (2)
  - CROHN'S DISEASE [None]
  - RASH [None]
